FAERS Safety Report 25592123 (Version 3)
Quarter: 2025Q3

REPORT INFORMATION
  Report Type: Spontaneous
  Country: US (occurrence: US)
  Receive Date: 20250722
  Receipt Date: 20250916
  Transmission Date: 20251020
  Serious: Yes (Other)
  Sender: UCB
  Company Number: US-UCBSA-2025044882

PATIENT
  Sex: Male
  Weight: 132.88 kg

DRUGS (1)
  1. BIMZELX [Suspect]
     Active Substance: BIMEKIZUMAB-BKZX
     Indication: Hidradenitis
     Dosage: 320 MILLIGRAM, EV 2 WEEKS(QOW)
     Route: 058
     Dates: start: 202506

REACTIONS (5)
  - Gastric haemorrhage [Unknown]
  - Nausea [Unknown]
  - Acne [Unknown]
  - Gastroenteritis viral [Unknown]
  - Headache [Unknown]

NARRATIVE: CASE EVENT DATE: 20250101
